FAERS Safety Report 7258799-5 (Version None)
Quarter: 2011Q1

REPORT INFORMATION
  Report Type: 
  Country: None (occurrence: None)
  Receive Date: 20110129
  Receipt Date: 20100615
  Transmission Date: 20110831
  Serious: No
  Sender: FDA-Public Use
  Company Number: US-ABBOTT-10P-163-0647588-00

PATIENT
  Sex: Female

DRUGS (7)
  1. HUMIRA [Suspect]
     Indication: PSORIATIC ARTHROPATHY
     Dates: start: 20060101, end: 20090801
  2. GABAPENTIN [Concomitant]
     Indication: PAIN
  3. ULTRAM [Concomitant]
     Indication: PAIN
  4. PREDNISONE [Concomitant]
     Indication: PSORIATIC ARTHROPATHY
  5. HUMIRA [Suspect]
     Dates: start: 20100501
  6. CELEBREX [Concomitant]
     Indication: ARTHRALGIA
  7. METHOTREXATE [Concomitant]
     Indication: PSORIATIC ARTHROPATHY
     Route: 048

REACTIONS (5)
  - STAPHYLOCOCCAL INFECTION [None]
  - DRUG DOSE OMISSION [None]
  - DEVICE MALFUNCTION [None]
  - INJECTION SITE SWELLING [None]
  - INJECTION SITE PAIN [None]
